FAERS Safety Report 17979310 (Version 1)
Quarter: 2020Q3

REPORT INFORMATION
  Report Type: Spontaneous
  Country: SK (occurrence: SK)
  Receive Date: 20200703
  Receipt Date: 20200703
  Transmission Date: 20201103
  Serious: Yes (Hospitalization, Other)
  Sender: FDA-Public Use
  Company Number: SK-ABBVIE-20K-260-3435654-00

PATIENT
  Age: 73 Year
  Sex: Male

DRUGS (1)
  1. IMBRUVICA [Suspect]
     Active Substance: IBRUTINIB
     Indication: CHRONIC LYMPHOCYTIC LEUKAEMIA
     Route: 048

REACTIONS (6)
  - Atrial fibrillation [Unknown]
  - Hypothyroidism [Unknown]
  - Hypokalaemia [Unknown]
  - Hypopituitarism [Unknown]
  - Arrhythmia [Unknown]
  - Oesophageal haemorrhage [Unknown]
